FAERS Safety Report 24048199 (Version 2)
Quarter: 2024Q4

REPORT INFORMATION
  Report Type: Report from Study
  Country: US (occurrence: US)
  Receive Date: 20240703
  Receipt Date: 20241120
  Transmission Date: 20250114
  Serious: Yes (Other)
  Sender: ABBVIE
  Company Number: US-ABBVIE-5821560

PATIENT
  Sex: Male

DRUGS (2)
  1. SKYRIZI [Suspect]
     Active Substance: RISANKIZUMAB-RZAA
     Indication: Psoriasis
     Route: 058
     Dates: start: 20200904
  2. TAMSULOSIN [Suspect]
     Active Substance: TAMSULOSIN
     Indication: Product used for unknown indication
     Route: 065

REACTIONS (7)
  - Loss of consciousness [Recovered/Resolved]
  - Dry skin [Recovering/Resolving]
  - Concussion [Recovered/Resolved]
  - Head injury [Unknown]
  - Dizziness [Unknown]
  - Heart rate decreased [Unknown]
  - Medical device implantation [Unknown]
